FAERS Safety Report 9417064 (Version 1)
Quarter: 2013Q3

REPORT INFORMATION
  Report Type: Report from Study
  Country: JP (occurrence: JP)
  Receive Date: 20130724
  Receipt Date: 20130724
  Transmission Date: 20140515
  Serious: Yes (Hospitalization)
  Sender: FDA-Public Use
  Company Number: JP-ROCHE-1226294

PATIENT
  Age: 41 Year
  Sex: Female
  Weight: 45.9 kg

DRUGS (8)
  1. TRASTUZUMAB EMTANSINE [Suspect]
     Indication: BREAST CANCER METASTATIC
     Dosage: LAST DOSE 01/MAY/2013,  DOSE 140 MG
     Route: 042
     Dates: start: 20120106
  2. BLINDED PERTUZUMAB [Suspect]
     Indication: BREAST CANCER METASTATIC
     Dosage: LAST DOSE WAS ON 01/MAY/2013
     Route: 042
     Dates: start: 20120106
  3. CALONAL [Concomitant]
     Route: 065
     Dates: start: 20120106
  4. DALACIN T [Concomitant]
     Indication: RASH
     Route: 065
     Dates: start: 20120706
  5. TALION (JAPAN) [Concomitant]
     Indication: RHINITIS ALLERGIC
     Route: 065
     Dates: start: 20130409
  6. DIQUAS [Concomitant]
     Indication: DRY EYE
     Route: 065
     Dates: start: 20130412
  7. ALLELOCK [Concomitant]
     Indication: RHINITIS ALLERGIC
     Route: 065
     Dates: start: 20130417, end: 20130420
  8. HYSETIN [Concomitant]
     Indication: VAGINAL INFECTION
     Route: 065
     Dates: start: 20130418, end: 20130418

REACTIONS (1)
  - Gastroenteritis [Recovered/Resolved]
